FAERS Safety Report 4299525-1 (Version None)
Quarter: 2004Q1

REPORT INFORMATION
  Report Type: 
  Country: None (occurrence: None)
  Receive Date: 20040217
  Receipt Date: 20040210
  Transmission Date: 20041129
  Serious: Yes (Other)
  Sender: FDA-Public Use
  Company Number: 200410712BCC

PATIENT
  Age: 34 Year
  Sex: Female
  Weight: 61.6892 kg

DRUGS (2)
  1. RID MOUSSE [Suspect]
     Indication: LICE INFESTATION
     Dosage: ONCE, TOPICAL
     Route: 061
     Dates: end: 20040101
  2. PRENATAL VITAMINS [Concomitant]

REACTIONS (2)
  - FOETAL GROWTH RETARDATION [None]
  - MATERNAL DRUGS AFFECTING FOETUS [None]
